FAERS Safety Report 6290626-5 (Version None)
Quarter: 2009Q3

REPORT INFORMATION
  Report Type: 
  Country: None (occurrence: None)
  Receive Date: 20090728
  Receipt Date: 20090728
  Transmission Date: 20100115
  Serious: Yes (Disabling)
  Sender: FDA-Public Use
  Company Number: None

PATIENT
  Sex: Female
  Weight: 68.9 kg

DRUGS (16)
  1. VORINOSTAT 100 MG [Suspect]
     Indication: ADENOCARCINOMA PANCREAS
     Dosage: 200 MG DAILY PO
     Route: 048
     Dates: start: 20090624, end: 20090714
  2. ACTONEL [Concomitant]
  3. CARDIZEM [Concomitant]
  4. COMPAZINE [Concomitant]
  5. DILAUDID [Concomitant]
  6. FLONASE [Concomitant]
  7. IMITREX [Concomitant]
  8. MAXAIR [Concomitant]
  9. MIRTAZAPINE [Concomitant]
  10. NEXIUM [Concomitant]
  11. SINGULAIR [Concomitant]
  12. SPIRIVA [Concomitant]
  13. VORINOSTAT [Concomitant]
  14. XOPENEX [Concomitant]
  15. ZOFRAN [Concomitant]
  16. ZYRTEC [Concomitant]

REACTIONS (4)
  - ABDOMINAL PAIN UPPER [None]
  - CHROMATURIA [None]
  - NAUSEA [None]
  - VOMITING [None]
